FAERS Safety Report 25953673 (Version 1)
Quarter: 2025Q4

REPORT INFORMATION
  Report Type: Spontaneous
  Country: EU (occurrence: EU)
  Receive Date: 20251023
  Receipt Date: 20251023
  Transmission Date: 20260118
  Serious: Yes (Hospitalization)
  Sender: MERCK SHARP & DOHME LLC
  Company Number: None

PATIENT
  Age: 92 Year
  Sex: Female
  Weight: 51 kg

DRUGS (1)
  1. KEYTRUDA [Suspect]
     Active Substance: PEMBROLIZUMAB
     Indication: Adenocarcinoma of colon
     Dosage: 200MG ACCORDING TO CYCLE
     Route: 042
     Dates: start: 20250521, end: 20250822

REACTIONS (1)
  - Acute kidney injury [Not Recovered/Not Resolved]

NARRATIVE: CASE EVENT DATE: 20250712
